FAERS Safety Report 5564008-5 (Version None)
Quarter: 2007Q4

REPORT INFORMATION
  Report Type: 
  Country: None (occurrence: None)
  Receive Date: 20071217
  Receipt Date: 20071211
  Transmission Date: 20080405
  Serious: Yes (Hospitalization)
  Sender: FDA-Public Use
  Company Number: US-ELI_LILLY_AND_COMPANY-US200710005290

PATIENT
  Sex: Female

DRUGS (14)
  1. BYETTA [Suspect]
     Dosage: 5 UG, 2/D
     Route: 058
     Dates: start: 20070101, end: 20070101
  2. BYETTA [Suspect]
     Dosage: 10 UG, 2/D
     Route: 058
     Dates: start: 20070101
  3. NOVOLIN N [Concomitant]
     Dosage: 45 U, EACH MORNING
     Route: 058
  4. NOVOLIN N [Concomitant]
     Dosage: 30 U, OTHER
     Route: 058
  5. REGULAR INSULIN [Concomitant]
     Dosage: UNK, AS NEEDED
  6. LOTENSIN [Concomitant]
     Indication: BLOOD PRESSURE INCREASED
     Dosage: UNK, UNKNOWN
  7. ASPIRIN [Concomitant]
     Indication: HYPERTENSION
     Dosage: 81 MG, UNKNOWN
  8. TIAZAC [Concomitant]
     Indication: HYPERTENSION
     Dosage: UNK, UNKNOWN
  9. ALLOPURINOL [Concomitant]
     Indication: GOUT
  10. LIPITOR [Concomitant]
     Indication: BLOOD CHOLESTEROL INCREASED
  11. PRILOSEC [Concomitant]
     Indication: GASTROOESOPHAGEAL REFLUX DISEASE
  12. ZOLOFT [Concomitant]
     Indication: DEPRESSION
     Dosage: 50 MG, DAILY (1/D)
     Route: 048
  13. MULTI-VITAMIN [Concomitant]
     Route: 048
  14. LASIX [Concomitant]
     Indication: FLUID IMBALANCE

REACTIONS (3)
  - BLOOD GLUCOSE DECREASED [None]
  - BLOOD GLUCOSE INCREASED [None]
  - PALPITATIONS [None]
